FAERS Safety Report 8595863-2 (Version None)
Quarter: 2012Q3

REPORT INFORMATION
  Report Type: 
  Country: None (occurrence: None)
  Receive Date: 20120815
  Receipt Date: 20120802
  Transmission Date: 20120928
  Serious: Yes (Disabling, Other)
  Sender: FDA-Public Use
  Company Number: GB-PFIZER INC-2012187750

PATIENT
  Age: 72 Year
  Sex: Female
  Weight: 71.66 kg

DRUGS (7)
  1. ASPIRIN [Concomitant]
     Dosage: UNK
     Route: 065
  2. AMLODIPINE [Concomitant]
     Dosage: UNK
     Route: 065
  3. SIMVASTATIN [Suspect]
     Indication: HYPERCHOLESTEROLAEMIA
     Dosage: 40 MG, UNK
     Route: 065
     Dates: start: 20070201, end: 20120501
  4. BENDROFLUMETHIAZIDE [Concomitant]
     Dosage: UNK
     Route: 065
  5. ATORVASTATIN CALCIUM [Suspect]
     Dosage: 40 MG, UNK
     Route: 048
  6. PERINDOPRIL TERT-BUTYLAMINE [Concomitant]
     Dosage: UNK
     Route: 065
  7. PERSANTIN [Concomitant]
     Dosage: UNK
     Route: 065

REACTIONS (3)
  - PAIN IN EXTREMITY [None]
  - ARTHRITIS [None]
  - AMNESIA [None]
